FAERS Safety Report 7920367-7 (Version None)
Quarter: 2011Q4

REPORT INFORMATION
  Report Type: 
  Country: None (occurrence: None)
  Receive Date: 20111117
  Receipt Date: 20111109
  Transmission Date: 20120403
  Serious: Yes (Hospitalization)
  Sender: FDA-Public Use
  Company Number: DE-AMGEN-DEUCT2011058898

PATIENT
  Age: 48 Year
  Sex: Female

DRUGS (4)
  1. CISPLATIN [Concomitant]
     Dosage: 60 MG/M2, UNK
     Route: 042
     Dates: start: 20111102
  2. CAPECITABINE [Concomitant]
     Dosage: 1250 MG/M2, UNK
     Route: 048
     Dates: start: 20111102
  3. PANITUMUMAB [Suspect]
     Indication: GASTRIC CANCER
     Dosage: UNK MG/KG, UNK
     Route: 042
     Dates: start: 20111102
  4. EPIRUBICIN [Concomitant]
     Dosage: 50 MG/M2, UNK
     Route: 042
     Dates: start: 20111102

REACTIONS (1)
  - SUBILEUS [None]
